FAERS Safety Report 12735054 (Version 12)
Quarter: 2019Q1

REPORT INFORMATION
  Report Type: Spontaneous
  Country: US (occurrence: US)
  Receive Date: 20160912
  Receipt Date: 20190305
  Transmission Date: 20190417
  Serious: Yes (Hospitalization, Disabling, Other)
  Sender: FDA-Public Use
  Company Number: US-PFIZER INC-2016422152

PATIENT
  Age: 49 Year
  Sex: Female
  Weight: 48 kg

DRUGS (15)
  1. HYDROCODONE BITARTRATE. [Concomitant]
     Active Substance: HYDROCODONE BITARTRATE
     Dosage: UNK
     Route: 048
  2. MINIPRESS [Concomitant]
     Active Substance: PRAZOSIN HYDROCHLORIDE
     Dosage: 2 MG, DAILY (AT BEDTIME)
     Route: 048
  3. GEODON [Suspect]
     Active Substance: ZIPRASIDONE HYDROCHLORIDE\ZIPRASIDONE MESYLATE
     Indication: ANXIETY
     Dosage: 80 MG, UNK
     Route: 048
     Dates: start: 2015, end: 201707
  4. EFFEXOR XR [Concomitant]
     Active Substance: VENLAFAXINE HYDROCHLORIDE
     Dosage: 150 MG, 2X/DAY
  5. ACETAMINOPHEN. [Concomitant]
     Active Substance: ACETAMINOPHEN
     Dosage: UNK, 3X/DAY (EVERY 8 HOURS)
     Route: 048
  6. KLONOPIN [Concomitant]
     Active Substance: CLONAZEPAM
     Dosage: 1 MG, 2X/DAY
  7. GEODON [Suspect]
     Active Substance: ZIPRASIDONE HYDROCHLORIDE\ZIPRASIDONE MESYLATE
     Indication: ESSENTIAL TREMOR
  8. CLONAZEPAM. [Concomitant]
     Active Substance: CLONAZEPAM
     Dosage: 0.75 MG, UNK
  9. VENLAFAXINE [Concomitant]
     Active Substance: VENLAFAXINE HYDROCHLORIDE
     Indication: POST-TRAUMATIC STRESS DISORDER
     Dosage: 150 MG, 1X/DAY (MORNING )
     Route: 048
     Dates: start: 2013
  10. PRAZOSIN. [Concomitant]
     Active Substance: PRAZOSIN
     Dosage: 2 MG, 1X/DAY (NIGHT)
  11. IBUPROFEN. [Concomitant]
     Active Substance: IBUPROFEN
     Dosage: UNK
     Route: 048
  12. GEODON [Suspect]
     Active Substance: ZIPRASIDONE HYDROCHLORIDE\ZIPRASIDONE MESYLATE
     Indication: TREMOR
     Dosage: 20 MG, 1X/DAY, AT NIGHT
     Route: 048
  13. GEODON [Suspect]
     Active Substance: ZIPRASIDONE HYDROCHLORIDE\ZIPRASIDONE MESYLATE
     Indication: POST-TRAUMATIC STRESS DISORDER
     Dosage: 40 MG, 1X/DAY, AT NIGHT
     Route: 048
     Dates: end: 2015
  14. GEODON [Suspect]
     Active Substance: ZIPRASIDONE HYDROCHLORIDE\ZIPRASIDONE MESYLATE
     Indication: NIGHTMARE
  15. CLONAZEPAM. [Concomitant]
     Active Substance: CLONAZEPAM
     Indication: POST-TRAUMATIC STRESS DISORDER
     Dosage: 1 MG, 1X/DAY (MORNING)
     Dates: start: 2013

REACTIONS (32)
  - Muscle rigidity [Recovered/Resolved]
  - Weight decreased [Recovered/Resolved]
  - Substance-induced psychotic disorder [Recovered/Resolved]
  - Asthenia [Recovered/Resolved]
  - Choking [Unknown]
  - Ataxia [Unknown]
  - Hyperhidrosis [Unknown]
  - Confusional state [Recovered/Resolved]
  - Loss of personal independence in daily activities [Not Recovered/Not Resolved]
  - Cerebral palsy [Unknown]
  - Speech disorder [Recovering/Resolving]
  - Tongue oedema [Recovered/Resolved]
  - Drug ineffective for unapproved indication [Not Recovered/Not Resolved]
  - Dysphagia [Unknown]
  - Tremor [Recovered/Resolved]
  - Wrong product administered [Unknown]
  - Gait disturbance [Not Recovered/Not Resolved]
  - Balance disorder [Recovered/Resolved]
  - Dystonia [Recovering/Resolving]
  - Off label use [Unknown]
  - Decreased appetite [Recovered/Resolved]
  - Withdrawal syndrome [Unknown]
  - Dyskinesia [Not Recovered/Not Resolved]
  - Extrapyramidal disorder [Recovered/Resolved]
  - Feeling abnormal [Recovered/Resolved]
  - Gait inability [Not Recovered/Not Resolved]
  - Motor dysfunction [Recovered/Resolved]
  - Amnesia [Recovered/Resolved]
  - Drooling [Unknown]
  - Weight increased [Unknown]
  - Insomnia [Unknown]
  - Muscle atrophy [Recovered/Resolved]

NARRATIVE: CASE EVENT DATE: 2013
